FAERS Safety Report 10301466 (Version 4)
Quarter: 2018Q3

REPORT INFORMATION
  Report Type: Spontaneous
  Country: JP (occurrence: JP)
  Receive Date: 20140714
  Receipt Date: 20180813
  Transmission Date: 20181010
  Serious: No
  Sender: FDA-Public Use
  Company Number: PHHY2014JP079588

PATIENT
  Age: 84 Year
  Sex: Male

DRUGS (1)
  1. EXELON PATCH [Suspect]
     Active Substance: RIVASTIGMINE
     Indication: DEMENTIA ALZHEIMER^S TYPE
     Dosage: 13.5 MG, UNK
     Route: 062
     Dates: start: 201208

REACTIONS (4)
  - Application site pruritus [Recovering/Resolving]
  - Affect lability [Recovered/Resolved]
  - Euphoric mood [Recovered/Resolved]
  - Anxiety [Recovered/Resolved]

NARRATIVE: CASE EVENT DATE: 201310
